FAERS Safety Report 9175226 (Version 1)
Quarter: 2013Q1

REPORT INFORMATION
  Report Type: Spontaneous
  Country: US (occurrence: US)
  Receive Date: 20130320
  Receipt Date: 20130320
  Transmission Date: 20140127
  Serious: No
  Sender: FDA-Public Use
  Company Number: US-009507513-1303USA006417

PATIENT
  Age: 71 Year
  Sex: Female
  Weight: 79.37 kg

DRUGS (2)
  1. JANUVIA [Suspect]
     Indication: DIABETES MELLITUS
     Dosage: 1 PILL PER DAY
     Route: 048
     Dates: start: 20130218
  2. NADOLOL [Concomitant]
     Dosage: 20 MG, UNK

REACTIONS (2)
  - Blood glucose increased [Unknown]
  - Constipation [Unknown]
